FAERS Safety Report 9796633 (Version 2)
Quarter: 2014Q1

REPORT INFORMATION
  Report Type: Spontaneous
  Country: CA (occurrence: CA)
  Receive Date: 20140103
  Receipt Date: 20140130
  Transmission Date: 20141002
  Serious: Yes (Other)
  Sender: FDA-Public Use
  Company Number: CA-PFIZER INC-2013373915

PATIENT
  Age: 5 Year
  Sex: Male

DRUGS (1)
  1. BENEFIX [Suspect]
     Indication: FACTOR IX DEFICIENCY
     Dosage: 1000 IU, 2X/WEEK
     Route: 042
     Dates: start: 20130429

REACTIONS (1)
  - Epistaxis [Recovered/Resolved]
